FAERS Safety Report 25819734 (Version 1)
Quarter: 2025Q3

REPORT INFORMATION
  Report Type: Spontaneous
  Country: US (occurrence: US)
  Receive Date: 20250918
  Receipt Date: 20250918
  Transmission Date: 20251021
  Serious: No
  Sender: JAZZ
  Company Number: US-JAZZ PHARMACEUTICALS-2025-US-017591

PATIENT
  Age: 62 Year
  Sex: Female

DRUGS (4)
  1. ZIIHERA [Suspect]
     Active Substance: ZANIDATAMAB-HRII
     Indication: Gallbladder cancer
  2. ZIIHERA [Suspect]
     Active Substance: ZANIDATAMAB-HRII
     Indication: Metastases to liver
  3. ZIIHERA [Suspect]
     Active Substance: ZANIDATAMAB-HRII
     Indication: Metastases to peritoneum
  4. MORPHINE [Concomitant]
     Active Substance: MORPHINE
     Indication: Product used for unknown indication

REACTIONS (1)
  - Chills [Unknown]
